FAERS Safety Report 25023487 (Version 1)
Quarter: 2025Q1

REPORT INFORMATION
  Report Type: Report from Study
  Country: NL (occurrence: NL)
  Receive Date: 20250228
  Receipt Date: 20250228
  Transmission Date: 20250409
  Serious: Yes (Hospitalization)
  Sender: AZURITY PHARMACEUTICALS
  Company Number: NL-AZURITY PHARMACEUTICALS, INC.-AZR202502-000674

PATIENT
  Age: 74 Year
  Sex: Male

DRUGS (3)
  1. TRIPTORELIN [Suspect]
     Active Substance: TRIPTORELIN
     Indication: Prostate cancer
     Route: 030
     Dates: start: 20210518
  2. TRIPTORELIN [Suspect]
     Active Substance: TRIPTORELIN
     Route: 030
     Dates: start: 20241213
  3. TRIPTORELIN [Suspect]
     Active Substance: TRIPTORELIN
     Route: 030
     Dates: start: 20250214

REACTIONS (2)
  - Pyrexia [Not Recovered/Not Resolved]
  - Confusional state [Unknown]

NARRATIVE: CASE EVENT DATE: 20250214
